FAERS Safety Report 7020318-6 (Version None)
Quarter: 2010Q3

REPORT INFORMATION
  Report Type: 
  Country: None (occurrence: None)
  Receive Date: 20100927
  Receipt Date: 20100916
  Transmission Date: 20110219
  Serious: Yes (Hospitalization, Other)
  Sender: FDA-Public Use
  Company Number: 2010US002784

PATIENT
  Age: 60 Year
  Sex: Female
  Weight: 31.026 kg

DRUGS (20)
  1. PROGRAF [Suspect]
     Indication: LUNG TRANSPLANT
     Dosage: 1 MG, BID, ORAL
     Route: 048
     Dates: start: 20031231, end: 20100401
  2. MXT (METHOTREXATE SODIUM) [Concomitant]
  3. PREDNISONE (PRDNISONE) [Concomitant]
  4. BACTRIM [Concomitant]
  5. NYSTATIN [Concomitant]
  6. COMBIVENT (IPRATROPIUM BROMIDE) INHALATION GAS [Concomitant]
  7. MAGNESIUM OXIDE (MAGNESIUM OXIDE) [Concomitant]
  8. CALCIUM + VITAMIN D (CALCIUM, COLECALCIFEROL) [Concomitant]
  9. FOLIC ACID [Concomitant]
  10. FOSAMAX [Concomitant]
  11. INSULIN LISPRO (INSULIN LISPRO) [Concomitant]
  12. PRILOSEC (OMEPRAZOLE) [Concomitant]
  13. IMURAN [Concomitant]
  14. CARDIZEM CD [Concomitant]
  15. ZITHROMAX [Concomitant]
  16. ASPIRIN [Concomitant]
  17. PAXIL [Concomitant]
  18. COLACE (DOCUSATE SODIUM) [Concomitant]
  19. HEPARIN [Concomitant]
  20. PERCOCET [Concomitant]

REACTIONS (23)
  - ABDOMINAL PAIN [None]
  - ARTERIOVENOUS FISTULA SITE INFECTION [None]
  - BREAST SWELLING [None]
  - CELLULITIS [None]
  - DIABETES MELLITUS [None]
  - DIARRHOEA [None]
  - FALL [None]
  - FLUID OVERLOAD [None]
  - FOOT FRACTURE [None]
  - GRAFT INFECTION [None]
  - HYPERTENSION [None]
  - JOINT SPRAIN [None]
  - LUNG TRANSPLANT REJECTION [None]
  - NAUSEA [None]
  - OEDEMA PERIPHERAL [None]
  - PANCYTOPENIA [None]
  - RENAL FAILURE ACUTE [None]
  - RENAL FAILURE CHRONIC [None]
  - RHEUMATOID ARTHRITIS [None]
  - THROMBOSIS [None]
  - TREATMENT FAILURE [None]
  - VENOUS OCCLUSION [None]
  - VOMITING [None]
